FAERS Safety Report 12252681 (Version 1)
Quarter: 2016Q2

REPORT INFORMATION
  Report Type: Spontaneous
  Country: US (occurrence: None)
  Receive Date: 20160408
  Receipt Date: 20160408
  Transmission Date: 20160815
  Serious: No
  Sender: FDA-Public Use
  Company Number: None

PATIENT
  Sex: Female

DRUGS (2)
  1. SIMVASTATIN, 20 MG [Suspect]
     Active Substance: SIMVASTATIN
  2. GLIPIZIDE. [Suspect]
     Active Substance: GLIPIZIDE

REACTIONS (4)
  - Blood glucose increased [None]
  - Urinary tract infection [None]
  - Drug dose omission [None]
  - Abdominal pain upper [None]
